FAERS Safety Report 21196369 (Version 2)
Quarter: 2022Q3

REPORT INFORMATION
  Report Type: Report from Study
  Country: CA (occurrence: CA)
  Receive Date: 20220810
  Receipt Date: 20220907
  Transmission Date: 20221027
  Serious: No
  Sender: FDA-Public Use
  Company Number: CA-JNJFOC-20220728904

PATIENT
  Age: 28 Year
  Sex: Male

DRUGS (1)
  1. TREMFYA [Suspect]
     Active Substance: GUSELKUMAB
     Indication: Psoriasis
     Route: 058
     Dates: start: 20190513

REACTIONS (6)
  - Syringe issue [Unknown]
  - Injection site bruising [Unknown]
  - Injection site pain [Unknown]
  - Product dose omission issue [Unknown]
  - Needle issue [Unknown]
  - Device issue [Unknown]
